FAERS Safety Report 4530382-1 (Version None)
Quarter: 2004Q4

REPORT INFORMATION
  Report Type: 
  Country: None (occurrence: None)
  Receive Date: 20041215
  Receipt Date: 20041202
  Transmission Date: 20050328
  Serious: Yes (Hospitalization)
  Sender: FDA-Public Use
  Company Number: 2004102168

PATIENT
  Age: 63 Year
  Sex: Female

DRUGS (4)
  1. AZITHROMYCIN [Suspect]
     Indication: PNEUMONIA
     Dosage: 500 MG (250 MG, 1 D), ORAL
     Route: 048
     Dates: start: 20041128
  2. DIDRONEL PMO ^NORWICH EATON^ (CALCIUM CARBONATE, ETIDRONATE DISODIUM) [Concomitant]
  3. LEVOTHYROXINE SODIUM [Concomitant]
  4. MULTIVITAMINS (ASCORBIC ACID, ERGOCALCIFEROL, FOLIC ACID, NICOTINAMIDE [Concomitant]

REACTIONS (4)
  - DISEASE PROGRESSION [None]
  - PNEUMONIA [None]
  - STOMACH DISCOMFORT [None]
  - VOMITING [None]
